FAERS Safety Report 16300261 (Version 1)
Quarter: 2019Q2

REPORT INFORMATION
  Report Type: Spontaneous
  Country: US (occurrence: US)
  Receive Date: 20190510
  Receipt Date: 20190510
  Transmission Date: 20190711
  Serious: No
  Sender: FDA-Public Use
  Company Number: US-ASTRAZENECA-2019SE57953

PATIENT
  Weight: 70.8 kg

DRUGS (1)
  1. SYMBICORT [Suspect]
     Active Substance: BUDESONIDE\FORMOTEROL FUMARATE DIHYDRATE
     Indication: EMPHYSEMA
     Dosage: 2 PUFFS, TWICE A DAY
     Route: 055
     Dates: start: 2008

REACTIONS (7)
  - Pain [Not Recovered/Not Resolved]
  - Condition aggravated [Not Recovered/Not Resolved]
  - Intentional product misuse [Unknown]
  - Lung disorder [Unknown]
  - Scoliosis [Unknown]
  - Osteoarthritis [Unknown]
  - Product dose omission [Unknown]
